FAERS Safety Report 12301698 (Version 1)
Quarter: 2016Q2

REPORT INFORMATION
  Report Type: Spontaneous
  Country: US (occurrence: US)
  Receive Date: 20160425
  Receipt Date: 20160425
  Transmission Date: 20160815
  Serious: Yes (Other)
  Sender: FDA-Public Use
  Company Number: US-ASTELLAS-2015US025217

PATIENT
  Age: 72 Year
  Sex: Female

DRUGS (2)
  1. TOPROL XL [Concomitant]
     Active Substance: METOPROLOL SUCCINATE
     Indication: PRODUCT USED FOR UNKNOWN INDICATION
     Dosage: UNK UNK, UNKNOWN FREQ.
     Route: 065
  2. LEXISCAN [Suspect]
     Active Substance: REGADENOSON
     Indication: PRODUCT USED FOR UNKNOWN INDICATION
     Dosage: UNK UNK, UNKNOWN FREQ.
     Route: 065
     Dates: start: 20150617

REACTIONS (9)
  - Blister [Unknown]
  - Dyspnoea [Not Recovered/Not Resolved]
  - Dizziness [Unknown]
  - Nausea [Not Recovered/Not Resolved]
  - Anaphylactic reaction [Unknown]
  - Malaise [Unknown]
  - Enzyme level decreased [Unknown]
  - Erythema [Unknown]
  - Musculoskeletal pain [Unknown]
